FAERS Safety Report 4426368-8 (Version None)
Quarter: 2004Q3

REPORT INFORMATION
  Report Type: 
  Country: None (occurrence: None)
  Receive Date: 20040811
  Receipt Date: 20040721
  Transmission Date: 20050211
  Serious: Yes (Hospitalization)
  Sender: FDA-Public Use
  Company Number: A01200403242

PATIENT
  Age: 65 Year
  Sex: Male

DRUGS (3)
  1. CLOPIDOGREL BISULFATE [Suspect]
     Dosage: 75 MG QD, ORAL
     Route: 048
     Dates: end: 20040621
  2. (ATORVASTATIN) [Suspect]
     Dates: end: 20040621
  3. ANTIHYPERTENSIVE AGENT [Concomitant]

REACTIONS (1)
  - HEPATITIS TOXIC [None]
